FAERS Safety Report 8953625 (Version 1)
Quarter: 2012Q4

REPORT INFORMATION
  Report Type: 
  Country: US (occurrence: US)
  Receive Date: 20121206
  Receipt Date: 20121206
  Transmission Date: 20130627
  Serious: Yes (Death, Hospitalization)
  Sender: FDA-Public Use
  Company Number: US-ALEXION PHARMACEUTICALS INC.-A201202265

PATIENT
  Age: 24 Year
  Sex: Female

DRUGS (13)
  1. SOLIRIS 300MG [Suspect]
     Indication: HAEMOLYTIC URAEMIC SYNDROME
     Dosage: 900 mg, qw x 4
     Route: 042
     Dates: start: 20121114
  2. PREDNISONE [Concomitant]
     Dosage: 20 mg, qd
  3. PREDNISONE [Concomitant]
     Dosage: 80 mg, qd
  4. OXYCODONE [Concomitant]
  5. HYDRALAZINE [Concomitant]
  6. HUMALOG [Concomitant]
  7. PROTONIX [Concomitant]
  8. LOPRESSOR [Concomitant]
  9. NORVASC [Concomitant]
  10. FAMOTIDINE [Concomitant]
     Dosage: UNK
     Dates: end: 201210
  11. NYSTATIN [Concomitant]
     Dosage: UNK
     Dates: end: 201210
  12. PANTOPRAZOLE [Concomitant]
     Dosage: UNK
     Dates: end: 201210
  13. HEPARIN [Concomitant]
     Dosage: UNK
     Route: 058
     Dates: end: 201210

REACTIONS (2)
  - Death [Fatal]
  - Haemorrhage [Unknown]
